FAERS Safety Report 23201378 (Version 1)
Quarter: 2023Q4

REPORT INFORMATION
  Report Type: Spontaneous
  Country: None (occurrence: US)
  Receive Date: 20231118
  Receipt Date: 20231118
  Transmission Date: 20240110
  Serious: Yes (Other)
  Sender: FDA-Public Use
  Company Number: US-Ascend Therapeutics US, LLC-2148425

PATIENT
  Age: 72 Year
  Sex: Female

DRUGS (2)
  1. BINOSTO [Suspect]
     Active Substance: ALENDRONATE SODIUM
     Indication: Osteoporosis
     Route: 048
     Dates: start: 200804, end: 201003
  2. ALENDRONATE SODIUM [Suspect]
     Active Substance: ALENDRONATE SODIUM
     Route: 048
     Dates: start: 200804, end: 201003

REACTIONS (1)
  - Atypical femur fracture [Unknown]
